FAERS Safety Report 12789896 (Version 1)
Quarter: 2016Q3

REPORT INFORMATION
  Report Type: Spontaneous
  Country: US (occurrence: US)
  Receive Date: 20160928
  Receipt Date: 20160928
  Transmission Date: 20161109
  Serious: No
  Sender: FDA-Public Use
  Company Number: US-KOWA-16US000203

PATIENT

DRUGS (4)
  1. LIVALO [Suspect]
     Active Substance: PITAVASTATIN CALCIUM
     Dosage: 4 UNK, UNK
     Dates: start: 201601, end: 20160204
  2. LEVOTHYROXINE. [Concomitant]
     Active Substance: LEVOTHYROXINE
     Indication: THYROID DISORDER
     Dosage: .025 MG, UNK
  3. OMEPRAZOLE. [Concomitant]
     Active Substance: OMEPRAZOLE
     Indication: GASTROOESOPHAGEAL REFLUX DISEASE
     Dosage: UNK
  4. LIVALO [Suspect]
     Active Substance: PITAVASTATIN CALCIUM
     Indication: BLOOD CHOLESTEROL INCREASED
     Dosage: 4 MG, QD
     Dates: start: 201601, end: 201601

REACTIONS (1)
  - Groin pain [Recovered/Resolved]

NARRATIVE: CASE EVENT DATE: 201601
